FAERS Safety Report 18092892 (Version 2)
Quarter: 2021Q3

REPORT INFORMATION
  Report Type: Report from Study
  Country: US (occurrence: US)
  Receive Date: 20200730
  Receipt Date: 20210924
  Transmission Date: 20211014
  Serious: Yes (Hospitalization, Disabling, Other)
  Sender: FDA-Public Use
  Company Number: US-SA-2018SA240119

PATIENT
  Age: 59 Year
  Sex: Female

DRUGS (2)
  1. ALEMTUZUMAB [Suspect]
     Active Substance: ALEMTUZUMAB
     Indication: MULTIPLE SCLEROSIS
     Dosage: 12 MG, QD
     Route: 041
     Dates: start: 20180418, end: 20180420
  2. ALEMTUZUMAB [Suspect]
     Active Substance: ALEMTUZUMAB
     Dosage: 12 MG, QD
     Route: 041
     Dates: start: 20170417, end: 20170421

REACTIONS (25)
  - Chromaturia [Recovered/Resolved]
  - Burning sensation [Recovered/Resolved]
  - Injury [Recovering/Resolving]
  - Gait disturbance [Recovering/Resolving]
  - Autoimmune disorder [Unknown]
  - Coccydynia [Recovering/Resolving]
  - Peroneal nerve palsy [Recovering/Resolving]
  - Foot deformity [Recovering/Resolving]
  - Back pain [Recovering/Resolving]
  - Unevaluable event [Not Recovered/Not Resolved]
  - Drug monitoring procedure not performed [Unknown]
  - Bacteraemia [Recovered/Resolved]
  - Fatigue [Recovered/Resolved]
  - Kidney infection [Recovered/Resolved]
  - Blood potassium decreased [Recovered/Resolved]
  - Upper respiratory tract infection [Recovered/Resolved]
  - Condition aggravated [Recovering/Resolving]
  - Urinary tract infection [Recovered/Resolved]
  - Dizziness [Recovering/Resolving]
  - Flank pain [Recovering/Resolving]
  - Gastrointestinal infection [Recovered/Resolved]
  - Pain [Recovered/Resolved]
  - Pyrexia [Recovered/Resolved]
  - Fall [Recovering/Resolving]
  - Diarrhoea [Recovered/Resolved]

NARRATIVE: CASE EVENT DATE: 2018
